FAERS Safety Report 21600117 (Version 1)
Quarter: 2022Q4

REPORT INFORMATION
  Report Type: Report from Study
  Country: PR (occurrence: PR)
  Receive Date: 20221116
  Receipt Date: 20221116
  Transmission Date: 20230112
  Serious: Yes (Other)
  Sender: FDA-Public Use
  Company Number: PR-ABBVIE-4198906

PATIENT
  Sex: Female
  Weight: 68.492 kg

DRUGS (11)
  1. SKYRIZI [Suspect]
     Active Substance: RISANKIZUMAB-RZAA
     Indication: Psoriasis
     Dosage: FORM STRENGTH: 150 MILLIGRAM
     Route: 058
     Dates: start: 20190318
  2. TRAMADOL [Concomitant]
     Active Substance: TRAMADOL
     Indication: Product used for unknown indication
     Dosage: FORM STRENGTH: 50 MILLIGRAM
     Route: 048
  3. Moderna COVID-19 vaccine(mRNA-1273) [Concomitant]
     Indication: COVID-19 immunisation
     Dosage: FREQUENCY: EVERY ONCE1ST DOSE
     Route: 030
  4. Moderna COVID-19 vaccine(mRNA-1273) [Concomitant]
     Indication: COVID-19 immunisation
     Dosage: FREQUENCY: EVERY ONCE 2ND DOSE
     Route: 030
  5. Moderna COVID-19 vaccine(mRNA-1273) [Concomitant]
     Indication: COVID-19 immunisation
     Dosage: FREQUENCY: EVERY ONCE 3RD DOSE
     Route: 030
  6. Moderna COVID-19 vaccine(mRNA-1273) [Concomitant]
     Indication: COVID-19 immunisation
     Dosage: FREQUENCY: EVERY ONCE 4TH DOSE
     Route: 030
  7. PANTOPRAZOLE [Concomitant]
     Active Substance: PANTOPRAZOLE
     Indication: Product used for unknown indication
     Dosage: FORM STRENGTH: 40 MILLIGRAM
     Route: 048
  8. FOSAMAX [Concomitant]
     Active Substance: ALENDRONATE SODIUM
     Indication: Product used for unknown indication
     Dosage: FORM STRENGTH: 70 MILLIGRAM
     Route: 048
  9. LOSARTAN [Concomitant]
     Active Substance: LOSARTAN
     Indication: Product used for unknown indication
     Dosage: FORM STRENGTH: 100 MILLIGRAM
     Route: 048
  10. ATORVASTATIN [Concomitant]
     Active Substance: ATORVASTATIN
     Indication: Product used for unknown indication
     Dosage: FORM STRENGTH: 40 MILLIGRAM
     Route: 048
  11. ASPIRIN [Concomitant]
     Active Substance: ASPIRIN
     Indication: Product used for unknown indication
     Dosage: FORM STRENGTH: 81 MILLIGRAM
     Route: 048

REACTIONS (1)
  - Rectal haemorrhage [Not Recovered/Not Resolved]

NARRATIVE: CASE EVENT DATE: 20220901
